FAERS Safety Report 16047746 (Version 1)
Quarter: 2019Q1

REPORT INFORMATION
  Report Type: Spontaneous
  Country: CA (occurrence: CA)
  Receive Date: 20190307
  Receipt Date: 20190307
  Transmission Date: 20190418
  Serious: Yes (Other)
  Sender: FDA-Public Use
  Company Number: CA-PFIZER INC-2019099637

PATIENT
  Age: 1 Year
  Sex: Female

DRUGS (9)
  1. METOPROLOL. [Suspect]
     Active Substance: METOPROLOL
     Dosage: 25 MG, 1X/DAY
     Route: 048
  2. SPIRONOLACTONE. [Suspect]
     Active Substance: SPIRONOLACTONE
     Dosage: 12.5 MG, 2X/DAY
     Route: 048
  3. LASIX [Suspect]
     Active Substance: FUROSEMIDE
     Dosage: UNK
     Route: 065
  4. CATAPRES [Suspect]
     Active Substance: CLONIDINE HYDROCHLORIDE
     Dosage: UNK
     Route: 065
  5. HYDROCHLOROTHIAZIDE. [Suspect]
     Active Substance: HYDROCHLOROTHIAZIDE
     Dosage: UNK
     Route: 065
  6. AMLODIPINE BESILATE [Suspect]
     Active Substance: AMLODIPINE BESYLATE
     Dosage: 3 MG, 1X/DAY
     Route: 048
  7. MINOXIDIL. [Suspect]
     Active Substance: MINOXIDIL
     Dosage: UNK
     Route: 065
  8. ENALAPRIL MALEATE. [Suspect]
     Active Substance: ENALAPRIL MALEATE
     Dosage: 1 MG, 2X/DAY
     Route: 048
  9. PRAZOSIN. [Suspect]
     Active Substance: PRAZOSIN
     Dosage: UNK
     Route: 065

REACTIONS (7)
  - Blood creatinine increased [Recovered/Resolved]
  - Cardiac hypertrophy [Recovered/Resolved]
  - Hypertrichosis [Recovered/Resolved]
  - Drug ineffective [Recovered/Resolved]
  - Proteinuria [Recovered/Resolved]
  - Acute kidney injury [Recovered/Resolved]
  - Condition aggravated [Recovered/Resolved]
